FAERS Safety Report 5081211-1 (Version None)
Quarter: 2006Q3

REPORT INFORMATION
  Report Type: 
  Country: None (occurrence: None)
  Receive Date: 20060810
  Receipt Date: 20060801
  Transmission Date: 20061208
  Serious: Yes (Hospitalization)
  Sender: FDA-Public Use
  Company Number: 2006VX000933

PATIENT
  Age: 51 Year
  Sex: Male
  Weight: 95.2554 kg

DRUGS (6)
  1. INTERFERON ALFACON-1 [Suspect]
     Indication: HEPATITIS C
     Dosage: 15 UG; QD; SC
     Route: 058
     Dates: start: 20051201, end: 20060607
  2. RIBAVIRIN [Concomitant]
  3. ALLOPURINOL [Concomitant]
  4. ZOLOFT [Concomitant]
  5. GEMFIBROZIL [Concomitant]
  6. PRILOSEC [Concomitant]

REACTIONS (1)
  - THERAPEUTIC AGENT TOXICITY [None]
